FAERS Safety Report 12606394 (Version 2)
Quarter: 2016Q3

REPORT INFORMATION
  Report Type: Spontaneous
  Country: JP (occurrence: JP)
  Receive Date: 20160729
  Receipt Date: 20160815
  Transmission Date: 20161109
  Serious: Yes (Other)
  Sender: FDA-Public Use
  Company Number: JP-GLAXOSMITHKLINE-JP2016JPN107113

PATIENT
  Age: 43 Year
  Sex: Male
  Weight: 59 kg

DRUGS (7)
  1. LEUCOVORIN. [Concomitant]
     Active Substance: LEUCOVORIN
     Indication: CEREBRAL TOXOPLASMOSIS
     Dosage: 10-25 MG/DAY, UNK
  2. VALGANCICLOVIR. [Suspect]
     Active Substance: VALGANCICLOVIR
     Dosage: 1800 MG, UNK
  3. UNKNOWN DRUG [Concomitant]
     Active Substance: UNSPECIFIED INGREDIENT
     Indication: CEREBRAL TOXOPLASMOSIS
     Dosage: 100 MG, QD
  4. TRIUMEQ [Suspect]
     Active Substance: ABACAVIR SULFATE\DOLUTEGRAVIR SODIUM\LAMIVUDINE
     Indication: HIV INFECTION
     Dosage: 1 DF, QD
     Route: 048
  5. LEUCOVORIN. [Concomitant]
     Active Substance: LEUCOVORIN
     Dosage: 15 MG, UNK
  6. SAMITREL [Suspect]
     Active Substance: ATOVAQUONE
     Indication: PNEUMOCYSTIS JIROVECII PNEUMONIA
     Route: 048
  7. SULFADIAZINE. [Concomitant]
     Active Substance: SULFADIAZINE
     Indication: CEREBRAL TOXOPLASMOSIS
     Dosage: 1000 MG, QID

REACTIONS (11)
  - Neuropsychiatric symptoms [Recovered/Resolved]
  - Lymphoma [Recovered/Resolved]
  - Paresis [Recovered/Resolved]
  - Atonic seizures [Unknown]
  - Intracranial mass [Recovered/Resolved]
  - Rash pruritic [Unknown]
  - Hypokinesia [Recovered/Resolved]
  - Pancytopenia [Recovered/Resolved]
  - Condition aggravated [Recovered/Resolved]
  - Diffuse large B-cell lymphoma [Recovered/Resolved]
  - Drug eruption [Unknown]
